FAERS Safety Report 7218035-2 (Version None)
Quarter: 2011Q1

REPORT INFORMATION
  Report Type: 
  Country: None (occurrence: None)
  Receive Date: 20110110
  Receipt Date: 20101116
  Transmission Date: 20110831
  Serious: Yes (Hospitalization)
  Sender: FDA-Public Use
  Company Number: US-BAYER-201038461NA

PATIENT
  Sex: Female
  Weight: 70.295 kg

DRUGS (11)
  1. OCELLA [Suspect]
     Indication: ACNE
  2. YAZ [Suspect]
     Indication: ACNE
  3. PEPCID AC [Concomitant]
  4. MULTIVITAMIN PREPARATION + MINERAL SUPPLEMENT [Concomitant]
  5. YASMIN [Suspect]
     Indication: ACNE
     Dosage: UNK
  6. REGLAN [Concomitant]
  7. OCELLA [Suspect]
     Indication: PREMENSTRUAL SYNDROME
  8. TRICOR [Concomitant]
     Indication: BLOOD CHOLESTEROL INCREASED
     Dosage: 145 MG, UNK
     Dates: start: 20030701, end: 20081101
  9. TRIAMIZIDE [Concomitant]
     Dosage: UNK
  10. YASMIN [Suspect]
     Indication: PREMENSTRUAL SYNDROME
  11. TRICOR [Concomitant]
     Dosage: 160 MG, UNK

REACTIONS (5)
  - PAIN [None]
  - CHOLELITHIASIS [None]
  - BILIARY DYSKINESIA [None]
  - ABDOMINAL DISTENSION [None]
  - NAUSEA [None]
